FAERS Safety Report 7168262-8 (Version None)
Quarter: 2010Q4

REPORT INFORMATION
  Report Type: 
  Country: None (occurrence: None)
  Receive Date: 20101216
  Receipt Date: 20101203
  Transmission Date: 20110411
  Serious: Yes (Life-Threatening, Hospitalization, Other)
  Sender: FDA-Public Use
  Company Number: JP-AMGEN-JPNSP2010007393

PATIENT

DRUGS (9)
  1. ENBREL [Suspect]
     Indication: RHEUMATOID ARTHRITIS
     Dosage: 25 MG, 2X/WEEK
     Route: 058
     Dates: start: 20080601, end: 20101118
  2. TACROLIMUS [Suspect]
     Indication: PRODUCT USED FOR UNKNOWN INDICATION
     Dosage: 1 MG, A DAY
     Route: 048
     Dates: start: 20090401, end: 20090401
  3. TACROLIMUS [Suspect]
     Dosage: 0.5 MG,  A DAY
     Route: 048
     Dates: start: 20090701, end: 20100412
  4. TACROLIMUS [Suspect]
     Dosage: 1 MG, QD
     Route: 048
     Dates: start: 20100413, end: 20101108
  5. TACROLIMUS [Suspect]
     Dosage: 1.5 MG, A DAY
     Route: 048
     Dates: start: 20101109, end: 20101118
  6. CORTICOSTEROID NOS [Concomitant]
  7. TACROLIMUS [Concomitant]
  8. PREDONINE [Concomitant]
     Dosage: UNK
     Dates: start: 20070401, end: 20101118
  9. ENDOXAN [Concomitant]
     Dosage: UNK
     Dates: start: 20080301

REACTIONS (5)
  - DRUG INTERACTION [None]
  - INTERSTITIAL LUNG DISEASE [None]
  - NAUSEA [None]
  - RHEUMATOID ARTHRITIS [None]
  - TUBERCULIN TEST POSITIVE [None]
